FAERS Safety Report 14074145 (Version 3)
Quarter: 2018Q1

REPORT INFORMATION
  Report Type: Report from Study
  Country: US (occurrence: US)
  Receive Date: 20171010
  Receipt Date: 20180222
  Transmission Date: 20180508
  Serious: Yes (Other)
  Sender: FDA-Public Use
  Company Number: US-OTSUKA-2017_019095

PATIENT
  Age: 89 Year
  Sex: Female

DRUGS (2)
  1. TOLVAPTAN [Suspect]
     Active Substance: TOLVAPTAN
     Indication: HYPONATRAEMIA
  2. TOLVAPTAN [Suspect]
     Active Substance: TOLVAPTAN
     Indication: BLOOD OSMOLARITY DECREASED
     Dosage: 15 MG, QD (1 TABLET DAILY)
     Route: 048
     Dates: start: 201708

REACTIONS (5)
  - Depressed mood [Unknown]
  - Dementia Alzheimer^s type [Unknown]
  - Crying [Unknown]
  - Myocardial infarction [Unknown]
  - Depression [Unknown]

NARRATIVE: CASE EVENT DATE: 20170917
